FAERS Safety Report 23194111 (Version 2)
Quarter: 2023Q4

REPORT INFORMATION
  Report Type: Spontaneous
  Country: US (occurrence: US)
  Receive Date: 20231117
  Receipt Date: 20231127
  Transmission Date: 20240109
  Serious: Yes (Other)
  Sender: FDA-Public Use
  Company Number: US-drreddys-SPO/USA/23/0183320

PATIENT
  Age: 23 Year
  Sex: Female

DRUGS (12)
  1. TACROLIMUS [Suspect]
     Active Substance: TACROLIMUS
     Indication: Immunosuppressant drug therapy
     Dosage: 4 TO 6 NG/ML
  2. CYCLOPHOSPHAMIDE [Suspect]
     Active Substance: CYCLOPHOSPHAMIDE
     Indication: Post transplant lymphoproliferative disorder
  3. DOXORUBICIN [Suspect]
     Active Substance: DOXORUBICIN
     Indication: Post transplant lymphoproliferative disorder
  4. GEMCITABINE [Suspect]
     Active Substance: GEMCITABINE
     Indication: Post transplant lymphoproliferative disorder
  5. MYCOPHENOLIC ACID [Suspect]
     Active Substance: MYCOPHENOLIC ACID
     Indication: Immunosuppressant drug therapy
  6. PREDNISONE [Suspect]
     Active Substance: PREDNISONE
     Indication: Immunosuppressant drug therapy
     Dosage: LOW-DOSE
  7. PREDNISONE [Suspect]
     Active Substance: PREDNISONE
     Indication: Post transplant lymphoproliferative disorder
  8. RITUXIMAB [Suspect]
     Active Substance: RITUXIMAB
     Indication: Post transplant lymphoproliferative disorder
  9. ETOPOSIDE [Suspect]
     Active Substance: ETOPOSIDE
     Indication: Post transplant lymphoproliferative disorder
  10. VINCRISTINE [Suspect]
     Active Substance: VINCRISTINE
     Indication: Post transplant lymphoproliferative disorder
  11. CARBOPLATIN [Suspect]
     Active Substance: CARBOPLATIN
     Indication: Post transplant lymphoproliferative disorder
  12. OBINUTUZUMAB [Suspect]
     Active Substance: OBINUTUZUMAB
     Indication: Post transplant lymphoproliferative disorder

REACTIONS (3)
  - Post transplant lymphoproliferative disorder [Recovered/Resolved]
  - Disease progression [Unknown]
  - Drug ineffective [Unknown]
